FAERS Safety Report 23778311 (Version 1)
Quarter: 2024Q2

REPORT INFORMATION
  Report Type: Spontaneous
  Country: US (occurrence: None)
  Receive Date: 20240423
  Receipt Date: 20240423
  Transmission Date: 20240716
  Serious: No
  Sender: FDA-Public Use
  Company Number: None

PATIENT
  Age: 81 Year
  Sex: Male

DRUGS (1)
  1. LENALIDOMIDE [Suspect]
     Active Substance: LENALIDOMIDE
     Indication: Plasma cell myeloma
     Dosage: 15 MG QD ORAL
     Route: 048
     Dates: start: 20230321

REACTIONS (2)
  - Pulmonary mass [None]
  - Neoplasm malignant [None]

NARRATIVE: CASE EVENT DATE: 20240303
